FAERS Safety Report 14728699 (Version 4)
Quarter: 2018Q3

REPORT INFORMATION
  Report Type: Spontaneous
  Country: GB (occurrence: GB)
  Receive Date: 20180406
  Receipt Date: 20180717
  Transmission Date: 20181010
  Serious: Yes (Hospitalization, Other)
  Sender: FDA-Public Use
  Company Number: GB-ELI_LILLY_AND_COMPANY-GB201804000151

PATIENT
  Sex: Female
  Weight: 89 kg

DRUGS (32)
  1. PROCYCLIDINE [Suspect]
     Active Substance: PROCYCLIDINE
     Dosage: UNK, UNKNOWN
     Route: 048
  2. HALOPERIDOL. [Suspect]
     Active Substance: HALOPERIDOL
     Dosage: UNK, UNKNOWN
     Route: 048
  3. CLONAZEPAM. [Suspect]
     Active Substance: CLONAZEPAM
     Dosage: UNK, UNKNOWN
     Route: 048
  4. HALOPERIDOL. [Suspect]
     Active Substance: HALOPERIDOL
     Indication: PRODUCT USED FOR UNKNOWN INDICATION
     Dosage: 10 MG, DAILY
     Route: 048
  5. CLONAZEPAM. [Suspect]
     Active Substance: CLONAZEPAM
     Dosage: 2 MG, DAILY
     Route: 048
     Dates: start: 20180108, end: 201801
  6. CLOZARIL [Suspect]
     Active Substance: CLOZAPINE
     Indication: PERSONALITY DISORDER
     Dosage: UNK, UNKNOWN
     Route: 065
  7. LAMOTRIGINE. [Suspect]
     Active Substance: LAMOTRIGINE
     Indication: PRODUCT USED FOR UNKNOWN INDICATION
     Dosage: 200 MG, DAILY
     Route: 048
  8. LAMOTRIGINE. [Suspect]
     Active Substance: LAMOTRIGINE
     Dosage: UNK, UNKNOWN
     Route: 048
  9. LAMOTRIGINE. [Suspect]
     Active Substance: LAMOTRIGINE
     Dosage: 100 MG, BID
     Route: 048
  10. LACTULOSE. [Concomitant]
     Active Substance: LACTULOSE
     Dosage: 15 ML, BID
     Route: 048
     Dates: start: 20180205
  11. HALOPERIDOL. [Suspect]
     Active Substance: HALOPERIDOL
     Dosage: 5 MG, BID
     Route: 048
  12. LORAZEPAM. [Suspect]
     Active Substance: LORAZEPAM
     Dosage: UNK UNK, UNKNOWN
     Route: 048
  13. PARACETAMOL [Concomitant]
     Active Substance: ACETAMINOPHEN
     Dosage: 1 G, PRN
     Route: 048
  14. LACTULOSE. [Concomitant]
     Active Substance: LACTULOSE
     Indication: PRODUCT USED FOR UNKNOWN INDICATION
     Dosage: 7.5 ML, DAILY
     Route: 065
  15. FLUTICASONE. [Concomitant]
     Active Substance: FLUTICASONE
     Dosage: 4 DF, DAILY
     Route: 055
  16. FLUTICASONE. [Concomitant]
     Active Substance: FLUTICASONE
     Dosage: 2 DF, BID
     Route: 055
  17. CLOZARIL [Suspect]
     Active Substance: CLOZAPINE
     Indication: SCHIZOPHRENIA
     Dosage: 200 MG, DAILY
     Route: 048
     Dates: start: 20180123, end: 20180212
  18. CLOZARIL [Suspect]
     Active Substance: CLOZAPINE
     Indication: PSYCHOTIC DISORDER
  19. LACTULOSE. [Concomitant]
     Active Substance: LACTULOSE
     Dosage: 10 ML, DAILY
     Route: 065
  20. SODIUM VALPROATE [Concomitant]
     Active Substance: VALPROATE SODIUM
     Indication: PRODUCT USED FOR UNKNOWN INDICATION
     Dosage: 2 G, DAILY
     Route: 048
  21. SODIUM VALPROATE [Concomitant]
     Active Substance: VALPROATE SODIUM
     Dosage: 1 G, BID
     Route: 048
  22. SENNA                              /00142201/ [Concomitant]
     Active Substance: SENNA LEAF
     Dosage: UNK, UNKNOWN
     Route: 048
     Dates: start: 201802
  23. OLANZAPINE. [Suspect]
     Active Substance: OLANZAPINE
     Indication: PRODUCT USED FOR UNKNOWN INDICATION
     Dosage: UNK UNK, UNKNOWN
     Route: 048
     Dates: end: 20180204
  24. LORAZEPAM. [Suspect]
     Active Substance: LORAZEPAM
     Indication: PRODUCT USED FOR UNKNOWN INDICATION
     Dosage: 2 MG, UNKNOWN
     Route: 048
     Dates: start: 20180108, end: 20180120
  25. OLANZAPINE. [Suspect]
     Active Substance: OLANZAPINE
     Dosage: 5 MG, DAILY
     Route: 048
     Dates: start: 20180108, end: 20180120
  26. SODIUM VALPROATE [Concomitant]
     Active Substance: VALPROATE SODIUM
     Dosage: UNK, UNKNOWN
     Route: 048
     Dates: start: 2018
  27. PARACETAMOL [Concomitant]
     Active Substance: ACETAMINOPHEN
     Indication: PRODUCT USED FOR UNKNOWN INDICATION
     Dosage: UNK, UNKNOWN
     Route: 048
     Dates: start: 2018
  28. PROCYCLIDINE [Suspect]
     Active Substance: PROCYCLIDINE
     Indication: PRODUCT USED FOR UNKNOWN INDICATION
     Dosage: 5 MG, PRN
     Route: 048
  29. CLONAZEPAM. [Suspect]
     Active Substance: CLONAZEPAM
     Indication: PRODUCT USED FOR UNKNOWN INDICATION
     Dosage: 3 MG, DAILY
     Route: 048
     Dates: start: 201801, end: 20180120
  30. CLOZARIL [Suspect]
     Active Substance: CLOZAPINE
     Indication: DISSOCIATIVE IDENTITY DISORDER
  31. SENNA                              /00142201/ [Concomitant]
     Active Substance: SENNA LEAF
     Indication: PRODUCT USED FOR UNKNOWN INDICATION
     Dosage: UNK, UNKNOWN
     Route: 048
  32. FLUTICASONE. [Concomitant]
     Active Substance: FLUTICASONE
     Indication: PRODUCT USED FOR UNKNOWN INDICATION
     Dosage: UNK, UNKNOWN
     Route: 065

REACTIONS (10)
  - Dehydration [Recovering/Resolving]
  - Renal impairment [Recovering/Resolving]
  - Urinary retention [Recovered/Resolved]
  - Vomiting [Recovering/Resolving]
  - Constipation [Recovered/Resolved]
  - Lethargy [Recovering/Resolving]
  - Hypophagia [Recovering/Resolving]
  - Acute kidney injury [Recovered/Resolved]
  - Urinary tract infection [Recovered/Resolved]
  - Malaise [Recovering/Resolving]

NARRATIVE: CASE EVENT DATE: 20180130
